FAERS Safety Report 4989858-5 (Version None)
Quarter: 2006Q2

REPORT INFORMATION
  Report Type: 
  Country: None (occurrence: None)
  Receive Date: 20060503
  Receipt Date: 20060424
  Transmission Date: 20061013
  Serious: Yes (Death, Other)
  Sender: FDA-Public Use
  Company Number: SI-AVENTIS-200614347GDDC

PATIENT

DRUGS (4)
  1. ARAVA [Suspect]
     Indication: RHEUMATOID ARTHRITIS
     Dosage: DOSE: UNK
  2. ARAVA [Suspect]
     Indication: PSORIATIC ARTHROPATHY
     Dosage: DOSE: UNK
  3. METHOTREXATE [Suspect]
     Dosage: DOSE: UNK
  4. METHOTREXATE [Concomitant]
     Dosage: DOSE: UNK

REACTIONS (17)
  - ALOPECIA [None]
  - ARTHRALGIA [None]
  - DIARRHOEA [None]
  - HYPERTENSION [None]
  - INFECTION [None]
  - JOINT SWELLING [None]
  - LEUKOPENIA [None]
  - LUNG NEOPLASM MALIGNANT [None]
  - NAUSEA [None]
  - PULMONARY EMBOLISM [None]
  - PULMONARY TUBERCULOSIS [None]
  - PURULENT PERICARDITIS [None]
  - RASH [None]
  - SKIN INFECTION [None]
  - STAPHYLOCOCCAL INFECTION [None]
  - THROMBOCYTOPENIA [None]
  - TRANSAMINASES INCREASED [None]
